FAERS Safety Report 11128073 (Version 3)
Quarter: 2015Q2

REPORT INFORMATION
  Report Type: Spontaneous
  Country: US (occurrence: US)
  Receive Date: 20150521
  Receipt Date: 20150604
  Transmission Date: 20150821
  Serious: Yes (Other)
  Sender: FDA-Public Use
  Company Number: US-PFIZER INC-2015169312

PATIENT
  Age: 71 Year
  Sex: Female
  Weight: 60.32 kg

DRUGS (2)
  1. LYRICA [Suspect]
     Active Substance: PREGABALIN
     Dosage: 75 MG, 1X/DAY(ONLY AT NIGHT)
  2. LYRICA [Suspect]
     Active Substance: PREGABALIN
     Indication: COMPLEX REGIONAL PAIN SYNDROME
     Dosage: 75 MG, 2X/DAY FOR TWO WEEKS
     Dates: start: 201505

REACTIONS (9)
  - Vision blurred [Unknown]
  - Pre-existing condition improved [Unknown]
  - Feeling abnormal [Unknown]
  - Therapeutic response unexpected [Unknown]
  - Diplopia [Not Recovered/Not Resolved]
  - Feeling drunk [Unknown]
  - Weight increased [Unknown]
  - Dizziness [Not Recovered/Not Resolved]
  - Somnolence [Unknown]
